FAERS Safety Report 7204018-5 (Version None)
Quarter: 2010Q4

REPORT INFORMATION
  Report Type: 
  Country: None (occurrence: None)
  Receive Date: 20101230
  Receipt Date: 20101216
  Transmission Date: 20110411
  Serious: Yes (Other)
  Sender: FDA-Public Use
  Company Number: PHHY2010HU86571

PATIENT
  Age: 43 Year
  Sex: Male

DRUGS (2)
  1. METOPROLOL [Suspect]
     Indication: MUSCULAR WEAKNESS
     Dosage: 50 MG
  2. MULTIVITAMIN [Concomitant]

REACTIONS (3)
  - GENERAL PHYSICAL CONDITION ABNORMAL [None]
  - WALKING DISABILITY [None]
  - WEIGHT DECREASED [None]
